FAERS Safety Report 25610693 (Version 1)
Quarter: 2025Q3

REPORT INFORMATION
  Report Type: Spontaneous
  Country: EU (occurrence: EU)
  Receive Date: 20250728
  Receipt Date: 20250728
  Transmission Date: 20251021
  Serious: Yes (Other)
  Sender: TEVA
  Company Number: None

PATIENT
  Age: 26 Year
  Sex: Male
  Weight: 75 kg

DRUGS (1)
  1. AMLODIPINE [Suspect]
     Active Substance: AMLODIPINE BESYLATE
     Indication: Hypertension
     Route: 048
     Dates: start: 20250101, end: 20250408

REACTIONS (1)
  - Gingival hypertrophy [Recovered/Resolved with Sequelae]

NARRATIVE: CASE EVENT DATE: 20250319
